FAERS Safety Report 9614446 (Version 1)
Quarter: 2013Q4

REPORT INFORMATION
  Report Type: Spontaneous
  Country: US (occurrence: None)
  Receive Date: 20131009
  Receipt Date: 20131009
  Transmission Date: 20140711
  Serious: Yes (Hospitalization)
  Sender: FDA-Public Use
  Company Number: None

PATIENT
  Age: 68 Year
  Sex: Male
  Weight: 63.96 kg

DRUGS (3)
  1. NITROFURANTOIN [Suspect]
     Indication: URINARY TRACT INFECTION
     Route: 048
  2. ASA [Concomitant]
  3. FISH OIL [Concomitant]

REACTIONS (3)
  - Pulmonary toxicity [None]
  - Chest pain [None]
  - Dyspnoea [None]
